FAERS Safety Report 7804972-4 (Version None)
Quarter: 2011Q4

REPORT INFORMATION
  Report Type: 
  Country: None (occurrence: None)
  Receive Date: 20111010
  Receipt Date: 20111007
  Transmission Date: 20120403
  Serious: Yes (Hospitalization)
  Sender: FDA-Public Use
  Company Number: MX-ABBOTT-11P-107-0862000-00

PATIENT
  Sex: Female

DRUGS (3)
  1. CEFDINIR [Suspect]
     Dosage: REGIMEN #2
     Route: 048
     Dates: start: 20110929, end: 20110929
  2. CEFDINIR [Suspect]
     Indication: PHARYNGITIS
     Dosage: #1
     Route: 048
     Dates: start: 20100101, end: 20100101
  3. LEVOTHYROXINE SODIUM [Concomitant]
     Indication: PRODUCT USED FOR UNKNOWN INDICATION

REACTIONS (1)
  - SCIATICA [None]
